FAERS Safety Report 25244999 (Version 1)
Quarter: 2025Q2

REPORT INFORMATION
  Report Type: Spontaneous
  Country: US (occurrence: None)
  Receive Date: 20250425
  Receipt Date: 20250425
  Transmission Date: 20250717
  Serious: Yes (Hospitalization)
  Sender: FDA-CTU
  Company Number: None

PATIENT
  Age: 31 Year
  Sex: Female
  Weight: 67.5 kg

DRUGS (4)
  1. LISINOPRIL [Suspect]
     Active Substance: LISINOPRIL
     Indication: Hypertension
     Dosage: OTHER QUANTITY : 1 TABLET(S);?FREQUENCY : DAILY;?
     Route: 048
     Dates: start: 20250315, end: 20250416
  2. EFFEXOR [Concomitant]
     Active Substance: VENLAFAXINE HYDROCHLORIDE
  3. noreth [Concomitant]
  4. IRON [Concomitant]
     Active Substance: IRON

REACTIONS (6)
  - Abdominal pain [None]
  - Vomiting [None]
  - Body temperature decreased [None]
  - Gastrointestinal inflammation [None]
  - Ascites [None]
  - Angioedema [None]

NARRATIVE: CASE EVENT DATE: 20250416
